FAERS Safety Report 5565342-5 (Version None)
Quarter: 2007Q4

REPORT INFORMATION
  Report Type: 
  Country: None (occurrence: None)
  Receive Date: 20071218
  Receipt Date: 20070504
  Transmission Date: 20080405
  Serious: No
  Sender: FDA-Public Use
  Company Number: US-BAUSCH-2007BL001521

PATIENT
  Sex: Female

DRUGS (1)
  1. TOBRAMYCIN [Suspect]
     Indication: CORNEAL ABRASION
     Route: 047
     Dates: start: 20070430, end: 20070503

REACTIONS (3)
  - CAUSTIC INJURY [None]
  - CONDITION AGGRAVATED [None]
  - VIRAL INFECTION [None]
